FAERS Safety Report 7045117-0 (Version None)
Quarter: 2010Q4

REPORT INFORMATION
  Report Type: 
  Country: None (occurrence: None)
  Receive Date: 20101014
  Receipt Date: 20100907
  Transmission Date: 20110411
  Serious: No
  Sender: FDA-Public Use
  Company Number: US-BRISTOL-MYERS SQUIBB COMPANY-15231491

PATIENT
  Age: 63 Year
  Sex: Female
  Weight: 97 kg

DRUGS (3)
  1. GLUCOPHAGE XR [Suspect]
     Route: 048
     Dates: start: 20100730
  2. LISINOPRIL [Concomitant]
     Indication: BLOOD PRESSURE
     Route: 048
  3. GLUCOTROL XL [Concomitant]
     Route: 048

REACTIONS (2)
  - DRUG INEFFECTIVE [None]
  - MEDICATION RESIDUE [None]
